FAERS Safety Report 23378270 (Version 2)
Quarter: 2024Q1

REPORT INFORMATION
  Report Type: Spontaneous
  Country: US (occurrence: US)
  Receive Date: 20240108
  Receipt Date: 20240110
  Transmission Date: 20240409
  Serious: Yes (Hospitalization, Other)
  Sender: FDA-Public Use
  Company Number: US-SA-2024SA002955

PATIENT
  Age: 58 Year
  Sex: Female

DRUGS (3)
  1. RIFAMPIN [Interacting]
     Active Substance: RIFAMPIN
     Indication: Tuberculosis
     Dosage: UNK
  2. LEVOTHYROXINE SODIUM [Interacting]
     Active Substance: LEVOTHYROXINE SODIUM
     Indication: Thyroid hormone replacement therapy
     Dosage: 88 UG (MCG) ONCE DAILY
     Route: 048
  3. LEVOTHYROXINE SODIUM [Interacting]
     Active Substance: LEVOTHYROXINE SODIUM
     Dosage: DOSE INCREASED TO 150 UG, (MCG) ONCE DAILY
     Route: 048

REACTIONS (5)
  - Hypothyroidism [Recovering/Resolving]
  - Drug interaction [Recovering/Resolving]
  - Temperature intolerance [Recovering/Resolving]
  - Fatigue [Recovering/Resolving]
  - Myalgia [Recovering/Resolving]
